FAERS Safety Report 10364648 (Version 1)
Quarter: 2014Q1

REPORT INFORMATION
  Report Type: Spontaneous
  Country: US (occurrence: None)
  Receive Date: 20140306
  Receipt Date: 20140306
  Transmission Date: 20141002
  Serious: Yes (Hospitalization, Other)
  Sender: FDA-Public Use
  Company Number: 163-21880-13106293

PATIENT
  Age: 82 Year
  Sex: Female

DRUGS (4)
  1. REVLIMID(LENALIDOMIDE)(25 MILLIGRAM, CAPSULES) [Suspect]
     Indication: PLASMA CELL MYELOMA
     Route: 048
     Dates: start: 200905, end: 2010
  2. MULTIVITAMINS(MULTIVITAMINS)(UNKNOWN) [Concomitant]
  3. ASPIRIN(ACETYLSALICYLIC ACID)(UNKNOWN) [Concomitant]
  4. LOPERAMIDE(LOPERAMIDE)(UNKNOWN) [Concomitant]

REACTIONS (1)
  - Pneumonia [None]
